FAERS Safety Report 11715122 (Version 1)
Quarter: 2015Q4

REPORT INFORMATION
  Report Type: Spontaneous
  Country: DE (occurrence: DE)
  Receive Date: 20151109
  Receipt Date: 20151109
  Transmission Date: 20160304
  Serious: Yes (Other)
  Sender: FDA-Public Use
  Company Number: DE-TEVA-605877GER

PATIENT
  Age: 17 Year
  Sex: Female

DRUGS (1)
  1. COPAXONE [Suspect]
     Active Substance: GLATIRAMER ACETATE
     Indication: MULTIPLE SCLEROSIS
     Dates: start: 20151028, end: 20151029

REACTIONS (8)
  - Dysphagia [Unknown]
  - Tachycardia [Unknown]
  - Immediate post-injection reaction [Unknown]
  - Heart rate increased [Unknown]
  - Panic attack [Unknown]
  - Hyperventilation [Unknown]
  - Chest discomfort [Unknown]
  - Hyperhidrosis [Unknown]

NARRATIVE: CASE EVENT DATE: 20151028
